FAERS Safety Report 4361660-7 (Version None)
Quarter: 2004Q2

REPORT INFORMATION
  Report Type: 
  Country: None (occurrence: None)
  Receive Date: 20040517
  Receipt Date: 20040511
  Transmission Date: 20050107
  Serious: Yes (Hospitalization)
  Sender: FDA-Public Use
  Company Number: 2004-04-0415

PATIENT
  Age: 54 Year
  Sex: Male
  Weight: 99.3377 kg

DRUGS (2)
  1. PEG-INTRON [Suspect]
     Indication: HEPATITIS C
     Dosage: 150 MCG QW SUBCUTANEOUS
     Route: 058
     Dates: start: 20040211, end: 20040406
  2. REBETOL [Suspect]
     Indication: HEPATITIS C
     Dosage: 1200 MG QD ORAL
     Route: 048
     Dates: start: 20040211, end: 20040406

REACTIONS (8)
  - ABDOMINAL PAIN [None]
  - ANAEMIA [None]
  - APPENDICITIS [None]
  - CHEST PAIN [None]
  - CHILLS [None]
  - HAEMOGLOBIN DECREASED [None]
  - NAUSEA [None]
  - SINUS BRADYCARDIA [None]
